FAERS Safety Report 13257189 (Version 2)
Quarter: 2017Q1

REPORT INFORMATION
  Report Type: Report from Study
  Country: US (occurrence: US)
  Receive Date: 20170221
  Receipt Date: 20170223
  Transmission Date: 20170428
  Serious: Yes (Other)
  Sender: FDA-Public Use
  Company Number: US-PFIZER INC-2017073305

PATIENT
  Sex: Female

DRUGS (2)
  1. DOSTINEX [Suspect]
     Active Substance: CABERGOLINE
     Dosage: 0.5 MG, WEEKLY
     Route: 048
  2. LETROFEMIN [Suspect]
     Active Substance: LETROZOLE
     Dosage: 2.5 MG/DAY, FROM THE FIRST DAY OF THE MENSTRUAL CYCLE
     Route: 048

REACTIONS (4)
  - Headache [Unknown]
  - Musculoskeletal pain [Unknown]
  - Haemorrhage [Unknown]
  - Oedema peripheral [Unknown]
